FAERS Safety Report 21816003 (Version 1)
Quarter: 2023Q1

REPORT INFORMATION
  Report Type: 
  Country: None (occurrence: None)
  Receive Date: 20230104
  Receipt Date: 20230104
  Transmission Date: 20230418
  Serious: No
  Sender: FDA-Public Use
  Company Number: None

PATIENT
  Sex: Female

DRUGS (1)
  1. XOPENEX [Suspect]
     Active Substance: LEVALBUTEROL HYDROCHLORIDE

REACTIONS (4)
  - Petechiae [Unknown]
  - Flushing [Unknown]
  - Periorbital swelling [Unknown]
  - Rash [Unknown]
